FAERS Safety Report 12524206 (Version 1)
Quarter: 2016Q3

REPORT INFORMATION
  Report Type: Spontaneous
  Country: PE (occurrence: PE)
  Receive Date: 20160704
  Receipt Date: 20160704
  Transmission Date: 20161109
  Serious: Yes (Other)
  Sender: FDA-Public Use
  Company Number: PE-AMGEN-PERSP2016085545

PATIENT
  Age: 75 Year
  Sex: Female

DRUGS (8)
  1. PROLIA [Suspect]
     Active Substance: DENOSUMAB
     Dosage: 60 MG, CYCLICAL
     Route: 058
     Dates: start: 20150505
  2. PROLIA [Suspect]
     Active Substance: DENOSUMAB
     Dosage: 60 MG, CYCLICAL
     Route: 058
     Dates: start: 20141022
  3. PROLIA [Suspect]
     Active Substance: DENOSUMAB
     Dosage: 60 MG, CYCLICAL
     Route: 058
     Dates: start: 20130920
  4. PROLIA [Suspect]
     Active Substance: DENOSUMAB
     Indication: OSTEOPOROSIS
     Dosage: 60 MG, CYCLICAL
     Route: 058
     Dates: start: 20120216
  5. PROLIA [Suspect]
     Active Substance: DENOSUMAB
     Dosage: 60 MG, CYCLICAL
     Route: 058
     Dates: start: 20120822
  6. PROLIA [Suspect]
     Active Substance: DENOSUMAB
     Dosage: 60 MG, CYCLICAL
     Route: 058
     Dates: start: 20151211
  7. PROLIA [Suspect]
     Active Substance: DENOSUMAB
     Dosage: 60 MG, CYCLICAL
     Route: 058
     Dates: start: 20130314
  8. PROLIA [Suspect]
     Active Substance: DENOSUMAB
     Dosage: 60 MG, CYCLICAL
     Route: 058
     Dates: start: 20140409

REACTIONS (4)
  - Gait disturbance [Unknown]
  - Pain [Unknown]
  - Foot fracture [Not Recovered/Not Resolved]
  - Fall [Unknown]

NARRATIVE: CASE EVENT DATE: 20160614
